FAERS Safety Report 11432660 (Version 1)
Quarter: 2015Q3

REPORT INFORMATION
  Report Type: Spontaneous
  Country: IN (occurrence: IN)
  Receive Date: 20150828
  Receipt Date: 20150828
  Transmission Date: 20151125
  Serious: Yes (Death)
  Sender: FDA-Public Use
  Company Number: IN-ASTRAZENECA-2015SE82104

PATIENT
  Age: 87 Year
  Sex: Male
  Weight: 55 kg

DRUGS (11)
  1. BRILINTA [Suspect]
     Active Substance: TICAGRELOR
     Indication: CORONARY ARTERY DISEASE
     Route: 048
     Dates: start: 20150715
  2. FLUENDONMR [Concomitant]
  3. NICORAN [Concomitant]
  4. TERAZONE [Concomitant]
  5. CONCARE [Concomitant]
  6. GLYCIPHAGE SR [Concomitant]
  7. ALDECTONE [Concomitant]
  8. IMDUR [Concomitant]
     Active Substance: ISOSORBIDE MONONITRATE
  9. BRILINTA [Suspect]
     Active Substance: TICAGRELOR
     Indication: RHEUMATIC HEART DISEASE
     Route: 048
     Dates: start: 20150715
  10. BRILINTA [Suspect]
     Active Substance: TICAGRELOR
     Indication: MULTIPLE SCLEROSIS
     Route: 048
     Dates: start: 20150715
  11. ROUCERESR [Concomitant]

REACTIONS (3)
  - Hypotension [Fatal]
  - Vascular stent thrombosis [Fatal]
  - Acute myocardial infarction [Fatal]

NARRATIVE: CASE EVENT DATE: 20150730
